FAERS Safety Report 7221020-8 (Version None)
Quarter: 2011Q1

REPORT INFORMATION
  Report Type: 
  Country: None (occurrence: None)
  Receive Date: 20110112
  Receipt Date: 20110104
  Transmission Date: 20110831
  Serious: Yes (Death, Hospitalization)
  Sender: FDA-Public Use
  Company Number: US-CELGENEUS-163-21880-10090154

PATIENT
  Sex: Female

DRUGS (16)
  1. BACTRIM DS [Concomitant]
     Dosage: 800-160MG
     Route: 048
  2. COMPAZINE [Concomitant]
     Indication: VOMITING
  3. COUMADIN [Concomitant]
     Route: 048
  4. SYNTHROID [Concomitant]
     Route: 065
  5. NORVASC [Concomitant]
     Route: 048
  6. COMPAZINE [Concomitant]
     Indication: NAUSEA
     Route: 048
  7. AVAPRO [Concomitant]
     Route: 048
  8. DEXAMETHASONE [Concomitant]
     Indication: MULTIPLE MYELOMA
     Route: 048
     Dates: start: 20100512
  9. ALLOPURINOL [Concomitant]
     Route: 048
  10. REVLIMID [Suspect]
     Route: 048
     Dates: start: 20100512
  11. ATENOLOL [Concomitant]
  12. KLOR-CON [Concomitant]
     Route: 048
  13. HYDROCHLOROTHIAZIDE [Concomitant]
     Route: 048
  14. COLCHICINE [Concomitant]
     Route: 048
  15. ALLEGRA [Concomitant]
     Route: 048
  16. TEKTURNA [Concomitant]
     Route: 048

REACTIONS (3)
  - HYPOTENSION [None]
  - DEATH [None]
  - DEHYDRATION [None]
